FAERS Safety Report 13486388 (Version 1)
Quarter: 2017Q2

REPORT INFORMATION
  Report Type: Spontaneous
  Country: GB (occurrence: GB)
  Receive Date: 20170426
  Receipt Date: 20170426
  Transmission Date: 20170830
  Serious: Yes (Death, Other)
  Sender: FDA-Public Use
  Company Number: GB-TEVA-761230ACC

PATIENT
  Age: 78 Year
  Sex: Female
  Weight: 90 kg

DRUGS (11)
  1. FERROUS FUMARATE [Concomitant]
     Active Substance: FERROUS FUMARATE
  2. FUROSEMIDE. [Concomitant]
     Active Substance: FUROSEMIDE
  3. AMLODIPINE [Concomitant]
     Active Substance: AMLODIPINE BESYLATE
  4. ASPIRIN. [Concomitant]
     Active Substance: ASPIRIN
  5. ATENOLOL. [Concomitant]
     Active Substance: ATENOLOL
  6. ISOSORBIDE. [Concomitant]
     Active Substance: ISOSORBIDE
  7. OMEPRAZOLE SODIUM [Concomitant]
     Active Substance: OMEPRAZOLE SODIUM
  8. METHOTREXATE. [Suspect]
     Active Substance: METHOTREXATE
     Indication: RHEUMATOID ARTHRITIS
     Route: 030
  9. CO-DYDRAMOL [Concomitant]
     Active Substance: ACETAMINOPHEN\DIHYDROCODEINE
  10. FOLIC ACID. [Concomitant]
     Active Substance: FOLIC ACID
  11. SIMVASTATIN. [Concomitant]
     Active Substance: SIMVASTATIN

REACTIONS (2)
  - Stomatitis [Not Recovered/Not Resolved]
  - Agranulocytosis [Fatal]

NARRATIVE: CASE EVENT DATE: 20170317
